FAERS Safety Report 16138723 (Version 1)
Quarter: 2019Q2

REPORT INFORMATION
  Report Type: Report from Study
  Country: US (occurrence: US)
  Receive Date: 20190401
  Receipt Date: 20190401
  Transmission Date: 20190711
  Serious: Yes (Hospitalization, Disabling, Other)
  Sender: FDA-Public Use
  Company Number: US-SA-2017SA042599

PATIENT
  Age: 42 Year
  Sex: Female
  Weight: 55.33 kg

DRUGS (3)
  1. PREDNISONE. [Concomitant]
     Active Substance: PREDNISONE
     Dosage: UNK UNK,UNK
     Route: 065
  2. SOLU-MEDROL [Concomitant]
     Active Substance: METHYLPREDNISOLONE SODIUM SUCCINATE
     Dosage: UNK
     Route: 065
     Dates: start: 20170615
  3. ALEMTUZUMAB [Suspect]
     Active Substance: ALEMTUZUMAB
     Indication: MULTIPLE SCLEROSIS
     Dosage: 12 MG,QD
     Route: 041
     Dates: start: 20170213, end: 20170217

REACTIONS (27)
  - Otitis media [Not Recovered/Not Resolved]
  - Nasopharyngitis [Recovered/Resolved]
  - Kidney infection [Recovering/Resolving]
  - Vomiting [Recovered/Resolved]
  - Bronchitis viral [Recovered/Resolved]
  - Malaise [Recovered/Resolved]
  - Muscular weakness [Unknown]
  - Sinus disorder [Not Recovered/Not Resolved]
  - Fatigue [Not Recovered/Not Resolved]
  - Gait disturbance [Recovered/Resolved]
  - Productive cough [Not Recovered/Not Resolved]
  - Pyrexia [Recovered/Resolved]
  - Oropharyngeal pain [Recovered/Resolved]
  - Atypical pneumonia [Recovered/Resolved]
  - Chest discomfort [Recovered/Resolved]
  - Cough [Recovered/Resolved]
  - Loss of consciousness [Unknown]
  - Seizure [Not Recovered/Not Resolved]
  - Rash [Recovered/Resolved]
  - Hypoacusis [Not Recovered/Not Resolved]
  - Pyrexia [Recovered/Resolved]
  - Ill-defined disorder [Unknown]
  - Cystitis [Recovering/Resolving]
  - Diarrhoea [Unknown]
  - Pneumonia [Not Recovered/Not Resolved]
  - Influenza [Recovered/Resolved]
  - Hypokinesia [Recovered/Resolved]

NARRATIVE: CASE EVENT DATE: 2017
